FAERS Safety Report 21640843 (Version 1)
Quarter: 2022Q4

REPORT INFORMATION
  Report Type: Report from Study
  Country: US (occurrence: US)
  Receive Date: 20221125
  Receipt Date: 20221125
  Transmission Date: 20230113
  Serious: Yes (Other)
  Sender: FDA-Public Use
  Company Number: US-ABBVIE-22K-163-4515136-00

PATIENT
  Sex: Female

DRUGS (2)
  1. RINVOQ [Suspect]
     Active Substance: UPADACITINIB
     Indication: Product used for unknown indication
     Route: 048
  2. PFIZER-BIONTECH COVID-19 VACCINE [Suspect]
     Active Substance: TOZINAMERAN
     Indication: COVID-19 immunisation
     Dosage: VACCINE?FREQUENCY 1 IN ONCE
     Route: 030

REACTIONS (5)
  - Hysterectomy [Recovering/Resolving]
  - Ovarian cyst [Recovering/Resolving]
  - Immunisation reaction [Recovered/Resolved]
  - Purulence [Recovering/Resolving]
  - Inflammation [Unknown]
